FAERS Safety Report 26089548 (Version 1)
Quarter: 2025Q4

REPORT INFORMATION
  Report Type: Spontaneous
  Country: EU (occurrence: EU)
  Receive Date: 20251125
  Receipt Date: 20251125
  Transmission Date: 20260117
  Serious: Yes (Death)
  Sender: BAUSCH AND LOMB
  Company Number: None

PATIENT
  Age: 62 Year
  Sex: Female
  Weight: 50 kg

DRUGS (19)
  1. ACYCLOVIR [Suspect]
     Active Substance: ACYCLOVIR
     Indication: Rash vesicular
     Dosage: NR
     Route: 065
     Dates: start: 20250923
  2. ACYCLOVIR [Suspect]
     Active Substance: ACYCLOVIR
     Route: 065
  3. LEVETIRACETAM [Suspect]
     Active Substance: LEVETIRACETAM
     Indication: Status epilepticus
     Dosage: 500 MG X2/J
     Route: 042
     Dates: start: 20250918
  4. LEVETIRACETAM [Suspect]
     Active Substance: LEVETIRACETAM
     Dosage: DOSE REINTRODUCED
     Route: 065
  5. VALACYCLOVIR HYDROCHLORIDE [Suspect]
     Active Substance: VALACYCLOVIR HYDROCHLORIDE
     Indication: Rash vesicular
     Dosage: NR
     Route: 065
     Dates: start: 20250922
  6. VALACYCLOVIR HYDROCHLORIDE [Suspect]
     Active Substance: VALACYCLOVIR HYDROCHLORIDE
     Dosage: DOSE REINTRODUCED
     Route: 065
  7. FLUCONAZOLE [Suspect]
     Active Substance: FLUCONAZOLE
     Indication: Systemic candida
     Dosage: NR
     Route: 042
     Dates: start: 20250926
  8. FLUCONAZOLE [Suspect]
     Active Substance: FLUCONAZOLE
     Dosage: DOSE REINTRODUCED
     Route: 065
  9. CEFTRIAXONE SODIUM [Suspect]
     Active Substance: CEFTRIAXONE SODIUM
     Indication: Meningitis pneumococcal
     Dosage: NR
     Route: 042
     Dates: start: 20250920, end: 20250921
  10. CEFTRIAXONE SODIUM [Suspect]
     Active Substance: CEFTRIAXONE SODIUM
     Dosage: NR
     Route: 042
     Dates: start: 20250923, end: 20251001
  11. CEFTRIAXONE SODIUM [Suspect]
     Active Substance: CEFTRIAXONE SODIUM
     Dosage: DOSE REINTRODUCED
     Route: 065
  12. VANCOMYCIN [Suspect]
     Active Substance: VANCOMYCIN
     Indication: Meningitis pneumococcal
     Dosage: NR
     Route: 065
     Dates: start: 20250920, end: 20250923
  13. VANCOMYCIN [Suspect]
     Active Substance: VANCOMYCIN
     Dosage: DOSE REINTRODUCED
     Route: 065
  14. RIFAMPIN [Suspect]
     Active Substance: RIFAMPIN
     Indication: Meningitis pneumococcal
     Dosage: NR
     Route: 065
     Dates: start: 20250929, end: 20251019
  15. RIFAMPIN [Suspect]
     Active Substance: RIFAMPIN
     Dosage: DOSE REINTRODUCED
     Route: 065
  16. CEFOTAXIME SODIUM [Suspect]
     Active Substance: CEFOTAXIME SODIUM
     Indication: Meningitis pneumococcal
     Dosage: NR
     Route: 065
     Dates: start: 20250929, end: 20251019
  17. CEFOTAXIME SODIUM [Suspect]
     Active Substance: CEFOTAXIME SODIUM
     Route: 065
  18. FOSFOMYCIN [Suspect]
     Active Substance: FOSFOMYCIN
     Indication: Meningitis pneumococcal
     Dosage: NR
     Route: 065
     Dates: start: 20250929, end: 20251019
  19. FOSFOMYCIN [Suspect]
     Active Substance: FOSFOMYCIN
     Dosage: DOSE REINTRODUCED
     Route: 065

REACTIONS (1)
  - Drug reaction with eosinophilia and systemic symptoms [Fatal]

NARRATIVE: CASE EVENT DATE: 20251001
